FAERS Safety Report 5104095-1 (Version None)
Quarter: 2006Q3

REPORT INFORMATION
  Report Type: 
  Country: None (occurrence: None)
  Receive Date: 20060911
  Receipt Date: 20060829
  Transmission Date: 20061208
  Serious: Yes (Hospitalization)
  Sender: FDA-Public Use
  Company Number: 2006107346

PATIENT
  Age: 78 Year
  Sex: Male

DRUGS (3)
  1. METHYLPREDNISOLONE ACETATE [Suspect]
     Indication: ARTHRITIS
  2. METHYLPREDNISOLONE ACETATE [Suspect]
     Indication: BACK PAIN
  3. BUPIVACAINE [Suspect]
     Indication: BACK PAIN

REACTIONS (6)
  - CSF BACTERIA IDENTIFIED [None]
  - IATROGENIC INFECTION [None]
  - INTERVERTEBRAL DISCITIS [None]
  - OSTEOMYELITIS [None]
  - PATHOGEN RESISTANCE [None]
  - PSEUDOMONAS INFECTION [None]
